FAERS Safety Report 5505835-X (Version None)
Quarter: 2007Q4

REPORT INFORMATION
  Report Type: 
  Country: None (occurrence: None)
  Receive Date: 20071102
  Receipt Date: 20071024
  Transmission Date: 20080405
  Serious: Yes (Death, Other)
  Sender: FDA-Public Use
  Company Number: PFIZER INC-2007089601

PATIENT
  Sex: Female
  Weight: 80.1 kg

DRUGS (1)
  1. SU-011,248 [Suspect]
     Indication: OVARIAN CANCER
     Route: 048
     Dates: start: 20070601, end: 20070920

REACTIONS (2)
  - DEATH [None]
  - PULMONARY EMBOLISM [None]
